FAERS Safety Report 18991560 (Version 2)
Quarter: 2021Q1

REPORT INFORMATION
  Report Type: Spontaneous
  Country: JP (occurrence: JP)
  Receive Date: 20210310
  Receipt Date: 20210315
  Transmission Date: 20210420
  Serious: Yes (Other)
  Sender: FDA-Public Use
  Company Number: JP-PFIZER INC-2021206580

PATIENT
  Age: 58 Year
  Sex: Female

DRUGS (4)
  1. CYCLOPHOSPHAMIDE. [Suspect]
     Active Substance: CYCLOPHOSPHAMIDE
     Indication: BREAST CANCER
     Dosage: 600 MG/M2, CYCLIC (FOUR TIMES EVERY 3 WEEKS)
  2. DOCETAXEL. [Concomitant]
     Active Substance: DOCETAXEL
     Indication: ADJUVANT THERAPY
     Dosage: 75 MG/M2, CYCLIC (FOUR TIMES EVERY 3 WEEKS)
  3. EPIRUBICIN HCL [Suspect]
     Active Substance: EPIRUBICIN HYDROCHLORIDE
     Indication: BREAST CANCER
     Dosage: 100 MG/M2, CYCLIC (FOUR TIMES EVERY 3 WEEKS)
  4. TRASTUZUMAB. [Concomitant]
     Active Substance: TRASTUZUMAB
     Indication: ADJUVANT THERAPY
     Dosage: 8 MG/KG LOADING DOSE AND 6 MG/KG THEREAFTER FOUR TIMES EVERY 3 WEEKS

REACTIONS (4)
  - Febrile neutropenia [Unknown]
  - Cystitis haemorrhagic [Unknown]
  - Anaemia [Unknown]
  - Thrombosis [Unknown]
